FAERS Safety Report 8915729 (Version 1)
Quarter: 2012Q4

REPORT INFORMATION
  Report Type: 
  Country: US (occurrence: US)
  Receive Date: 20121119
  Receipt Date: 20121119
  Transmission Date: 20130627
  Serious: No
  Sender: FDA-Public Use
  Company Number: US-ASTRAZENECA-2012SE84732

PATIENT
  Age: 74 Year
  Sex: Female
  Weight: 83.5 kg

DRUGS (6)
  1. TOPROL XL [Suspect]
     Indication: SUPRAVENTRICULAR EXTRASYSTOLES
     Route: 048
     Dates: start: 2007
  2. TOPROL XL [Suspect]
     Indication: SUPRAVENTRICULAR EXTRASYSTOLES
     Route: 048
     Dates: start: 2008
  3. TOPROL XL [Suspect]
     Indication: SUPRAVENTRICULAR EXTRASYSTOLES
     Dosage: 75MG PO QAM, 25MG QNOON and 75MG PO HS.
     Route: 048
     Dates: start: 2008
  4. VITAMINS MULTIVITAMIN [Concomitant]
  5. VIT D3 SOFTGEL [Concomitant]
  6. NANOVITAMINS [Concomitant]

REACTIONS (5)
  - Abdominal pain upper [Unknown]
  - Vomiting [Unknown]
  - Nausea [Unknown]
  - Abdominal pain upper [Unknown]
  - Drug ineffective [Unknown]
